FAERS Safety Report 20538414 (Version 1)
Quarter: 2022Q1

REPORT INFORMATION
  Report Type: Report from Study
  Country: CA (occurrence: CA)
  Receive Date: 20220302
  Receipt Date: 20220302
  Transmission Date: 20220423
  Serious: Yes (Other)
  Sender: FDA-Public Use
  Company Number: CA-JNJFOC-20210861317

PATIENT
  Age: 21 Year
  Sex: Female
  Weight: 66 kg

DRUGS (2)
  1. STELARA [Suspect]
     Active Substance: USTEKINUMAB
     Indication: Crohn^s disease
     Dosage: ADDITIONAL BATCH NUMBER- MAR-2024 PATIENT RECEIVED DOSE ON 06-DEC-2021
     Route: 058
     Dates: start: 20200512
  2. STELARA [Suspect]
     Active Substance: USTEKINUMAB

REACTIONS (5)
  - Infected vasculitis [Recovering/Resolving]
  - Haematochezia [Unknown]
  - Vasculitis [Recovering/Resolving]
  - Limb injury [Recovering/Resolving]
  - Stress [Unknown]

NARRATIVE: CASE EVENT DATE: 20210101
